FAERS Safety Report 6096680-8 (Version None)
Quarter: 2009Q1

REPORT INFORMATION
  Report Type: 
  Country: None (occurrence: None)
  Receive Date: 20090227
  Receipt Date: 20090216
  Transmission Date: 20090719
  Serious: Yes (Death, Hospitalization)
  Sender: FDA-Public Use
  Company Number: IT-TEVA-185744ISR

PATIENT
  Age: 63 Year
  Sex: Male

DRUGS (5)
  1. FLUDARABINE PHOSPHATE [Suspect]
  2. VINCRISTINE [Suspect]
  3. RITUXIMAB [Suspect]
  4. CYCLOPHOSPHAMIDE [Suspect]
  5. PREDNISONE [Suspect]

REACTIONS (2)
  - HAEMOLYTIC ANAEMIA [None]
  - PROGRESSIVE MULTIFOCAL LEUKOENCEPHALOPATHY [None]
